FAERS Safety Report 17766740 (Version 1)
Quarter: 2020Q2

REPORT INFORMATION
  Report Type: Spontaneous
  Country: BR (occurrence: BR)
  Receive Date: 20200511
  Receipt Date: 20200511
  Transmission Date: 20200714
  Serious: Yes (Other)
  Sender: FDA-Public Use
  Company Number: BR-SA-2020SA105724

PATIENT
  Age: 62 Year
  Sex: Female
  Weight: 59 kg

DRUGS (15)
  1. SIMVASTATIN. [Concomitant]
     Active Substance: SIMVASTATIN
     Indication: BLOOD CHOLESTEROL
     Dosage: 1 DF, QD
     Route: 048
     Dates: start: 202002
  2. CLOPIDOGREL [Concomitant]
     Active Substance: CLOPIDOGREL BISULFATE
     Indication: CARDIAC DISORDER
     Dosage: 1 TABLET AFTER THE LUNCH
     Route: 048
  3. AMLODIPINE [Concomitant]
     Active Substance: AMLODIPINE BESYLATE
     Indication: HYPERTENSION
     Dosage: 1 TABLET IN MORNING
     Route: 048
     Dates: start: 202002
  4. ESOMEPRAZOL [ESOMEPRAZOLE] [Concomitant]
     Active Substance: ESOMEPRAZOLE
     Dosage: UNK
     Route: 048
     Dates: start: 202003
  5. DRENATAN [Concomitant]
     Active Substance: LATANOPROST
     Dosage: 1 TIMES IN MORNING
     Route: 048
     Dates: start: 201910
  6. LANTUS SOLOSTAR [Suspect]
     Active Substance: INSULIN GLARGINE
     Indication: TYPE 2 DIABETES MELLITUS
     Dosage: 24 IU, QD
     Route: 058
  7. CARVEDILOL. [Concomitant]
     Active Substance: CARVEDILOL
     Indication: CARDIAC DISORDER
     Dosage: 1 TABLET EVERY 12 H
     Route: 048
     Dates: start: 202002
  8. ALDACTONE [Concomitant]
     Active Substance: SPIRONOLACTONE
     Indication: BLOOD PRESSURE MEASUREMENT
     Dosage: 1 DF, QD
     Route: 048
     Dates: start: 202002
  9. SOMALGIN [Concomitant]
     Active Substance: ASPIRIN\DIHYDROXYALUMINUM AMINOACETATE ANHYDROUS\MAGNESIUM CARBONATE
     Dosage: 1 TABLET AFTER LUNCH
     Route: 048
  10. EUTHYROX [Concomitant]
     Active Substance: LEVOTHYROXINE SODIUM
     Indication: THYROID DISORDER
     Dosage: 1 FASTING TABLET
     Route: 048
  11. LANTUS SOLOSTAR [Suspect]
     Active Substance: INSULIN GLARGINE
     Dosage: 40 IU, BID
     Route: 065
  12. CEBRALAT [Concomitant]
     Active Substance: CILOSTAZOL
     Dosage: 1 TABLET EVERY HOURS
     Route: 048
     Dates: start: 202002
  13. GLIFAGE [Concomitant]
     Active Substance: METFORMIN HYDROCHLORIDE
     Indication: DIABETES MELLITUS
     Dosage: 2 TABLET IN MORNING AND 1 AT LUNCH
     Route: 048
  14. APIDRA SOLOSTAR [Suspect]
     Active Substance: INSULIN GLULISINE
     Dosage: 4 IU
     Route: 065
  15. HYABAK [ACTINOQUINOL;HYALURONATE SODIUM] [Concomitant]
     Indication: EYE LUBRICATION THERAPY
     Dosage: UNK UNK, TID
     Route: 048
     Dates: start: 201910

REACTIONS (10)
  - Muscular weakness [Unknown]
  - Seizure [Unknown]
  - Hypoglycaemia [Unknown]
  - Blood glucose increased [Recovered/Resolved]
  - Device issue [Recovered/Resolved]
  - Injection site injury [Recovered/Resolved]
  - Off label use [Unknown]
  - Product storage error [Unknown]
  - Cold sweat [Unknown]
  - Blood pressure decreased [Unknown]
